FAERS Safety Report 11112479 (Version 3)
Quarter: 2015Q2

REPORT INFORMATION
  Report Type: Report from Study
  Country: UA (occurrence: UA)
  Receive Date: 20150514
  Receipt Date: 20150522
  Transmission Date: 20150821
  Serious: Yes (Hospitalization)
  Sender: FDA-Public Use
  Company Number: UA-SA-2015SA061775

PATIENT
  Age: 21 Year
  Sex: Female
  Weight: 52 kg

DRUGS (16)
  1. UTROGESTAN [Concomitant]
     Active Substance: PROGESTERONE
  2. ARGININE [Concomitant]
     Active Substance: ARGININE
  3. CEREZYME [Suspect]
     Active Substance: IMIGLUCERASE
     Indication: GAUCHER^S DISEASE TYPE I
     Dosage: FREQUENCY: 2 TIMES PER MONTH DOSE:60 UNIT(S)/KILOGRAM BODYWEIGHT
     Route: 041
     Dates: start: 20050217
  4. VITAMIN B12 [Concomitant]
     Active Substance: CYANOCOBALAMIN
  5. MUCALTIN [Concomitant]
  6. NO-SPA [Concomitant]
     Active Substance: DROTAVERINE HYDROCHLORIDE
  7. CANEPHRON N [Concomitant]
  8. VITAMIN B6 [Concomitant]
     Active Substance: PYRIDOXINE HYDROCHLORIDE
  9. REOSORBILACT [Concomitant]
  10. PROTEFLAZID [Concomitant]
     Dosage: DROPS ACCORDING TO REGIMEN.
  11. GLUTARGIN [Concomitant]
  12. PAPAVERINE [Concomitant]
     Active Substance: PAPAVERINE
  13. RIBOXIN [Concomitant]
  14. NORMAL SALINE [Concomitant]
     Active Substance: SODIUM CHLORIDE
  15. MEBHYDROLIN [Concomitant]
     Active Substance: MEBHYDROLIN
  16. STREPSILS [Concomitant]

REACTIONS (15)
  - Headache [Recovered/Resolved]
  - Gout [Unknown]
  - Influenza [Unknown]
  - Rhinorrhoea [Recovered/Resolved]
  - Malaise [Recovered/Resolved]
  - Cardiomyopathy [Unknown]
  - Platelet count decreased [Unknown]
  - Exposure during pregnancy [Unknown]
  - Sinus arrhythmia [Unknown]
  - Herpes simplex serology positive [Unknown]
  - Arthralgia [Recovered/Resolved]
  - Asthenia [Recovered/Resolved]
  - Body temperature increased [Recovered/Resolved]
  - Splenomegaly [Unknown]
  - Respiratory tract infection viral [Unknown]
